FAERS Safety Report 6677502-0 (Version None)
Quarter: 2010Q2

REPORT INFORMATION
  Report Type: 
  Country: None (occurrence: None)
  Receive Date: 20100412
  Receipt Date: 20100406
  Transmission Date: 20101027
  Serious: Yes (Congenital Anomaly)
  Sender: FDA-Public Use
  Company Number: B0646574A

PATIENT
  Sex: Female

DRUGS (2)
  1. AGENERASE [Suspect]
     Indication: DRUG USE FOR UNKNOWN INDICATION
  2. TELZIR [Suspect]
     Indication: DRUG USE FOR UNKNOWN INDICATION

REACTIONS (2)
  - CONGENITAL CLAVICULAR AGENESIS [None]
  - DRUG EXPOSURE DURING PREGNANCY [None]
